FAERS Safety Report 18031657 (Version 2)
Quarter: 2020Q3

REPORT INFORMATION
  Report Type: Spontaneous
  Country: ES (occurrence: ES)
  Receive Date: 20200716
  Receipt Date: 20200901
  Transmission Date: 20201103
  Serious: Yes (Other)
  Sender: FDA-Public Use
  Company Number: ES-ACCORD-190851

PATIENT
  Age: 50 Year
  Sex: Male
  Weight: 79 kg

DRUGS (5)
  1. FOLINIC ACID [Concomitant]
     Active Substance: LEUCOVORIN
     Dosage: ROUTE OF ADMINISTRATION:INFUSION
     Dates: start: 20200625, end: 20200625
  2. FLUOROURACIL. [Concomitant]
     Active Substance: FLUOROURACIL
     Dosage: ROUTE OF ADMIN :INFUSION 24H (BOLUS)
     Dates: start: 20200625, end: 20200625
  3. OXALIPLATIN. [Suspect]
     Active Substance: OXALIPLATIN
     Indication: COLORECTAL CANCER
     Dosage: 200MG/40ML
     Route: 042
     Dates: start: 20200625
  4. IRINOTECAN [Concomitant]
     Active Substance: IRINOTECAN
     Dosage: ROUTE OF ADMINISTRATION:INFUSION
     Dates: start: 20200625, end: 20200625
  5. BEVACIZUMAB. [Concomitant]
     Active Substance: BEVACIZUMAB
     Dosage: ROUTE OF ADMINISTRATION:INFUSION
     Dates: start: 20200625, end: 20200625

REACTIONS (6)
  - Infusion related reaction [Recovered/Resolved]
  - Erythema [Recovered/Resolved]
  - Pruritus [Recovered/Resolved]
  - Vomiting [Recovered/Resolved]
  - Nausea [Recovered/Resolved]
  - Abdominal pain [Recovered/Resolved]

NARRATIVE: CASE EVENT DATE: 20200625
